FAERS Safety Report 6697581-4 (Version None)
Quarter: 2010Q2

REPORT INFORMATION
  Report Type: 
  Country: None (occurrence: None)
  Receive Date: 20100426
  Receipt Date: 20100115
  Transmission Date: 20101027
  Serious: No
  Sender: FDA-Public Use
  Company Number: US-ABBOTT-09P-163-0612867-00

PATIENT
  Sex: Female
  Weight: 61.29 kg

DRUGS (2)
  1. AZMACORT [Suspect]
     Indication: ASTHMA
     Dosage: 1 PUFF IN THE AM AND 1 PUFF IN THE PM
     Route: 055
  2. ALBUTEROL [Concomitant]
     Indication: ASTHMA
     Route: 055

REACTIONS (2)
  - COUGH [None]
  - WHEEZING [None]
